FAERS Safety Report 7757751-0 (Version None)
Quarter: 2011Q3

REPORT INFORMATION
  Report Type: 
  Country: None (occurrence: None)
  Receive Date: 20110917
  Receipt Date: 20110905
  Transmission Date: 20111222
  Serious: Yes (Hospitalization)
  Sender: FDA-Public Use
  Company Number: US-MYLANLABS-2011S1018953

PATIENT
  Sex: Female

DRUGS (3)
  1. BUPROPION HCL [Concomitant]
     Indication: AFFECTIVE DISORDER
     Route: 065
  2. LAMOTRIGINE [Suspect]
     Route: 065
  3. ARIPIPRAZOLE [Concomitant]
     Indication: AFFECTIVE DISORDER
     Route: 065

REACTIONS (2)
  - SEBACEOUS GLAND DISORDER [None]
  - STEVENS-JOHNSON SYNDROME [None]
